FAERS Safety Report 9612960 (Version 3)
Quarter: 2014Q2

REPORT INFORMATION
  Report Type: Report from Study
  Country: US (occurrence: US)
  Receive Date: 20131010
  Receipt Date: 20140528
  Transmission Date: 20141212
  Serious: Yes (Hospitalization, Other)
  Sender: FDA-Public Use
  Company Number: US-ACTELION-A-NJ2013-89439

PATIENT
  Age: 61 Year
  Sex: Female

DRUGS (1)
  1. TRACLEER [Suspect]
     Indication: PULMONARY ARTERIAL HYPERTENSION
     Dosage: UNK
     Route: 048

REACTIONS (9)
  - Dialysis [Unknown]
  - Pneumonia aspiration [Unknown]
  - Syncope [Unknown]
  - Cough [Unknown]
  - Exercise tolerance decreased [Unknown]
  - Oedema [Unknown]
  - Fatigue [Unknown]
  - Blood pressure decreased [Unknown]
  - Drug dose omission [Unknown]
